FAERS Safety Report 14193138 (Version 1)
Quarter: 2017Q4

REPORT INFORMATION
  Report Type: Spontaneous
  Country: US (occurrence: US)
  Receive Date: 20171115
  Receipt Date: 20171115
  Transmission Date: 20180321
  Serious: No
  Sender: FDA-Public Use
  Company Number: US-BAUSCH-BL-2016-027496

PATIENT
  Age: 68 Year
  Sex: Male

DRUGS (2)
  1. XENAZINE [Suspect]
     Active Substance: TETRABENAZINE
     Route: 048
     Dates: start: 201610
  2. XENAZINE [Suspect]
     Active Substance: TETRABENAZINE
     Indication: DYSKINESIA
     Route: 048
     Dates: start: 201002

REACTIONS (2)
  - Off label use [Not Recovered/Not Resolved]
  - Prescribed overdose [Unknown]

NARRATIVE: CASE EVENT DATE: 201002
